FAERS Safety Report 7829852-X (Version None)
Quarter: 2011Q4

REPORT INFORMATION
  Report Type: 
  Country: None (occurrence: None)
  Receive Date: 20111018
  Receipt Date: 20111010
  Transmission Date: 20120403
  Serious: Yes (Other)
  Sender: FDA-Public Use
  Company Number: NO-ACCORD-010956

PATIENT

DRUGS (7)
  1. DOXORUBICIN HCL [Suspect]
     Indication: HODGKIN'S DISEASE
     Dosage: 25.00-MG/M2
     Route: 042
  2. CYCLOPHOSPHAMIDE [Suspect]
     Indication: HODGKIN'S DISEASE
     Dosage: 650.00-MG/M2
     Route: 042
  3. BLEOMYCIN SULFATE [Suspect]
     Indication: HODGKIN'S DISEASE
     Dosage: 10000.00-LU
     Route: 042
  4. PROCARBAZINE HYDROCHLORIDE [Suspect]
     Indication: HODGKIN'S DISEASE
     Dosage: 100.00-MG/M2
     Route: 048
  5. ETOPOSIDE [Suspect]
     Indication: HODGKIN'S DISEASE
     Dosage: 100.00-MG/M2
     Route: 042
  6. VINCRISTINE [Suspect]
     Indication: HODGKIN'S DISEASE
     Dosage: 1.40-MG/M2
     Route: 042
  7. PREDNISOLONE [Suspect]
     Indication: HODGKIN'S DISEASE
     Dosage: 40.00-MG/M2
     Route: 048

REACTIONS (4)
  - VENOUS THROMBOSIS [None]
  - PULMONARY EMBOLISM [None]
  - THROMBOSIS [None]
  - OFF LABEL USE [None]
